FAERS Safety Report 6889913-9 (Version None)
Quarter: 2010Q3

REPORT INFORMATION
  Report Type: 
  Country: None (occurrence: None)
  Receive Date: 20100730
  Receipt Date: 20080610
  Transmission Date: 20110219
  Serious: No
  Sender: FDA-Public Use
  Company Number: US-PFIZER INC-2008049458

PATIENT
  Sex: Male
  Weight: 85 kg

DRUGS (3)
  1. LIPITOR [Suspect]
     Indication: BLOOD CHOLESTEROL INCREASED
  2. VIAGRA [Suspect]
     Indication: ERECTILE DYSFUNCTION
  3. PERCOCET [Concomitant]
     Indication: BACK PAIN

REACTIONS (2)
  - CYANOPSIA [None]
  - ERECTILE DYSFUNCTION [None]
